FAERS Safety Report 8507194-7 (Version None)
Quarter: 2012Q3

REPORT INFORMATION
  Report Type: 
  Country: None (occurrence: None)
  Receive Date: 20120712
  Receipt Date: 20120709
  Transmission Date: 20120928
  Serious: Yes (Other)
  Sender: FDA-Public Use
  Company Number: GR-AMGEN-GRCSP2012037268

PATIENT
  Age: 75 Year
  Sex: Male

DRUGS (2)
  1. PROLIA [Suspect]
     Indication: METASTASES TO BONE
     Dosage: 60 MG, Q2WK
     Dates: start: 20111101
  2. ANTIHYPERTENSIVES [Concomitant]
     Dosage: UNK

REACTIONS (3)
  - OVERDOSE [None]
  - OEDEMA PERIPHERAL [None]
  - GENERALISED OEDEMA [None]
